FAERS Safety Report 8268692-7 (Version None)
Quarter: 2012Q2

REPORT INFORMATION
  Report Type: 
  Country: None (occurrence: None)
  Receive Date: 20120409
  Receipt Date: 20120403
  Transmission Date: 20120825
  Serious: Yes (Death)
  Sender: FDA-Public Use
  Company Number: US-UCBSA-030670

PATIENT
  Age: 31 Year
  Sex: Male
  Weight: 98 kg

DRUGS (11)
  1. PENNSAID [Concomitant]
     Indication: MYALGIA
     Dosage: 16.05 MG/ML
     Dates: start: 20110131
  2. CALCIUM CARBONATE [Concomitant]
     Indication: DYSPEPSIA
     Dates: start: 20101130
  3. OMEPRAZOLE [Concomitant]
     Indication: DYSPEPSIA
     Dates: start: 20110311
  4. DEPAKOTE [Concomitant]
     Dates: start: 20101208, end: 20101215
  5. DEPAKOTE [Concomitant]
     Dosage: 500 MG EVERY MORNING AND 1000 MG ONCE EVERY NIGHT
     Dates: start: 20101201, end: 20101207
  6. DEPAKOTE [Concomitant]
     Dates: start: 20100804, end: 20101130
  7. ADDERALL 5 [Concomitant]
     Indication: ATTENTION DEFICIT/HYPERACTIVITY DISORDER
     Dates: start: 20100101
  8. TYLENOL (CAPLET) [Concomitant]
     Indication: BACK PAIN
     Dates: start: 19990101
  9. LACOSAMIDE [Suspect]
     Indication: EPILEPSY
     Route: 048
     Dates: start: 20101108
  10. IBUPROFEN (ADVIL) [Concomitant]
  11. DEPAKOTE [Concomitant]
     Indication: EPILEPSY
     Dosage: 500 MG AT BED TIME
     Dates: start: 20101216, end: 20110112

REACTIONS (1)
  - EPILEPSY [None]
